FAERS Safety Report 22386127 (Version 1)
Quarter: 2023Q2

REPORT INFORMATION
  Report Type: Spontaneous
  Country: FR (occurrence: FR)
  Receive Date: 20230530
  Receipt Date: 20230530
  Transmission Date: 20230721
  Serious: Yes (Hospitalization)
  Sender: FDA-Public Use
  Company Number: None

PATIENT
  Age: 83 Year
  Sex: Male

DRUGS (6)
  1. VENLAFAXINE HYDROCHLORIDE [Suspect]
     Active Substance: VENLAFAXINE HYDROCHLORIDE
     Indication: Depression
     Route: 048
     Dates: start: 20230207, end: 20230403
  2. ASPIRIN [Suspect]
     Active Substance: ASPIRIN
     Indication: Cardiovascular event prophylaxis
     Route: 048
     Dates: start: 2022, end: 20230403
  3. HALDOL [Interacting]
     Active Substance: HALOPERIDOL
     Indication: Behaviour disorder
     Dosage: 2 MG/ML, ORAL SOLUTION IN DROPS
     Route: 048
     Dates: start: 20230125, end: 20230403
  4. MIANSERIN HYDROCHLORIDE [Suspect]
     Active Substance: MIANSERIN HYDROCHLORIDE
     Indication: Depression
     Dosage: CHLORHYDRATE DE MIANSERINE
     Route: 048
     Dates: start: 2022, end: 20230403
  5. AMOXICILLIN\CLAVULANIC ACID [Concomitant]
     Active Substance: AMOXICILLIN\CLAVULANIC ACID
     Indication: Lung disorder
     Dosage: AMOXICILLIN / CLAVULANIC ACID MYLAN 500 MG/62.5 MG ADULTS, FILM-COATED TABLETS
     Route: 048
     Dates: start: 20230313, end: 20230322
  6. CEFTRIAXONE SODIUM [Concomitant]
     Active Substance: CEFTRIAXONE SODIUM
     Indication: Lung disorder
     Route: 042
     Dates: start: 20230322, end: 20230401

REACTIONS (2)
  - Hepatic failure [Not Recovered/Not Resolved]
  - Hepatocellular injury [Not Recovered/Not Resolved]

NARRATIVE: CASE EVENT DATE: 20230403
